FAERS Safety Report 22213560 (Version 5)
Quarter: 2023Q4

REPORT INFORMATION
  Report Type: Report from Study
  Country: US (occurrence: None)
  Receive Date: 20230414
  Receipt Date: 20231011
  Transmission Date: 20240109
  Serious: Yes (Hospitalization, Other)
  Sender: FDA-Public Use
  Company Number: US-ROCHE-3327499

PATIENT
  Age: 75 Year
  Sex: Female

DRUGS (11)
  1. PERTUZUMAB\TRASTUZUMAB [Suspect]
     Active Substance: PERTUZUMAB\TRASTUZUMAB
     Indication: Endometrial cancer
     Dosage: ON 10/MAR/2023 WAS THE CURRENT TREATMENT DATE.
     Route: 058
     Dates: start: 20230120
  2. PERTUZUMAB\TRASTUZUMAB [Suspect]
     Active Substance: PERTUZUMAB\TRASTUZUMAB
     Dosage: ON 10/MAR/2023 WAS THE CURRENT TREATMENT DATE.
     Route: 058
     Dates: start: 20230501
  3. PERTUZUMAB\TRASTUZUMAB [Suspect]
     Active Substance: PERTUZUMAB\TRASTUZUMAB
     Dosage: ON 10/MAR/2023 WAS THE CURRENT TREATMENT DATE.
     Route: 058
     Dates: start: 20230713
  4. CARBOPLATIN [Suspect]
     Active Substance: CARBOPLATIN
     Indication: Endometrial cancer
     Dosage: ON 10/MAR/2023 WAS THE CURRENT TREATMENT DATE.
     Route: 042
     Dates: start: 20230120
  5. CARBOPLATIN [Suspect]
     Active Substance: CARBOPLATIN
     Dosage: ON 10/MAR/2023 WAS THE CURRENT TREATMENT DATE.
     Route: 042
     Dates: start: 20230501
  6. CARBOPLATIN [Suspect]
     Active Substance: CARBOPLATIN
     Dosage: ON 10/MAR/2023 WAS THE CURRENT TREATMENT DATE.
     Route: 042
     Dates: start: 20230713
  7. PACLITAXEL [Suspect]
     Active Substance: PACLITAXEL
     Indication: Endometrial cancer
     Dosage: ON 10/MAR/2023 WAS THE CURRENT TREATMENT DATE.
     Route: 042
     Dates: start: 20230120
  8. PACLITAXEL [Suspect]
     Active Substance: PACLITAXEL
     Dosage: ON 10/MAR/2023 WAS THE CURRENT TREATMENT DATE.
     Route: 042
     Dates: start: 20230501
  9. PACLITAXEL [Suspect]
     Active Substance: PACLITAXEL
     Dosage: ON 10/MAR/2023 WAS THE CURRENT TREATMENT DATE.
     Route: 042
     Dates: start: 20230713
  10. KAYEXALATE [Concomitant]
     Active Substance: SODIUM POLYSTYRENE SULFONATE
  11. POTASSIUM CHLORIDE [Concomitant]
     Active Substance: POTASSIUM CHLORIDE
     Dosage: SA 20 MEQ CONTROLLED RELEASE TABLET, TAKE 40 MEQ BY MOUTH 2 TIMES DAILY
     Route: 048

REACTIONS (5)
  - Hypokalaemia [Unknown]
  - Hyperkalaemia [Unknown]
  - Hyponatraemia [Recovered/Resolved]
  - Pneumonia [Recovered/Resolved]
  - Febrile neutropenia [Unknown]

NARRATIVE: CASE EVENT DATE: 20230129
